FAERS Safety Report 21904365 (Version 1)
Quarter: 2023Q1

REPORT INFORMATION
  Report Type: Spontaneous
  Country: US (occurrence: None)
  Receive Date: 20230124
  Receipt Date: 20230124
  Transmission Date: 20230418
  Serious: No
  Sender: FDA-Public Use
  Company Number: 2023A016727

PATIENT

DRUGS (3)
  1. SEROQUEL [Suspect]
     Active Substance: QUETIAPINE FUMARATE
     Route: 048
  2. LIPITOR [Suspect]
     Active Substance: ATORVASTATIN CALCIUM
     Route: 065
  3. ABILIFY [Suspect]
     Active Substance: ARIPIPRAZOLE
     Route: 065

REACTIONS (5)
  - Erectile dysfunction [Unknown]
  - Amnesia [Unknown]
  - Malaise [Unknown]
  - Somnolence [Unknown]
  - Medication error [Unknown]
